FAERS Safety Report 12885390 (Version 2)
Quarter: 2016Q4

REPORT INFORMATION
  Report Type: Spontaneous
  Country: TW (occurrence: TW)
  Receive Date: 20161026
  Receipt Date: 20161227
  Transmission Date: 20170207
  Serious: Yes (Other)
  Sender: FDA-Public Use
  Company Number: TW-MYLANLABS-2016M1044469

PATIENT

DRUGS (6)
  1. LORAZEPAM. [Interacting]
     Active Substance: LORAZEPAM
     Indication: PRODUCT USED FOR UNKNOWN INDICATION
     Dosage: 1 MG, TID
     Dates: start: 20110519, end: 20110522
  2. VALPROIC ACID. [Interacting]
     Active Substance: VALPROIC ACID
     Indication: MENTAL DISORDER
     Dosage: 500 MG, HS
  3. ZOLPIDEM [Concomitant]
     Active Substance: ZOLPIDEM\ZOLPIDEM TARTRATE
     Indication: MENTAL DISORDER
     Dosage: 10 MG, HS
  4. CLOZAPINE. [Suspect]
     Active Substance: CLOZAPINE
     Indication: ALCOHOL WITHDRAWAL SYNDROME
  5. CLOZAPINE. [Suspect]
     Active Substance: CLOZAPINE
     Indication: MENTAL DISORDER
     Dosage: 100 MG, HS
     Dates: start: 20110519, end: 20110522
  6. FLURAZEPAM [Concomitant]
     Active Substance: FLURAZEPAM\FLURAZEPAM HYDROCHLORIDE
     Indication: PRODUCT USED FOR UNKNOWN INDICATION
     Dosage: 2 DF, HS

REACTIONS (9)
  - Aspartate aminotransferase increased [Unknown]
  - Alanine aminotransferase increased [Unknown]
  - Drug interaction [Unknown]
  - Platelet count decreased [Unknown]
  - Upper respiratory tract infection [Unknown]
  - White blood cell count increased [Unknown]
  - Red blood cell count decreased [Unknown]
  - Blood creatine phosphokinase increased [Unknown]
  - Product use issue [Unknown]

NARRATIVE: CASE EVENT DATE: 201105
